FAERS Safety Report 9260855 (Version 2)
Quarter: 2013Q2

REPORT INFORMATION
  Report Type: Spontaneous
  Country: CM (occurrence: CM)
  Receive Date: 20130429
  Receipt Date: 20130506
  Transmission Date: 20140414
  Serious: Yes (Hospitalization, Disabling)
  Sender: FDA-Public Use
  Company Number: CM-PFIZER INC-2013130858

PATIENT
  Age: 35 Year
  Sex: Male

DRUGS (2)
  1. FELDENE [Suspect]
     Indication: PAIN
     Dosage: 20 MG, 1X/DAY
     Route: 030
     Dates: start: 20130418, end: 20130418
  2. OFLOCET [Concomitant]

REACTIONS (2)
  - Oedema [Unknown]
  - Injection site necrosis [Unknown]
